FAERS Safety Report 7344625-2 (Version None)
Quarter: 2011Q1

REPORT INFORMATION
  Report Type: 
  Country: None (occurrence: None)
  Receive Date: 20110310
  Receipt Date: 20110301
  Transmission Date: 20110831
  Serious: Yes (Death, Hospitalization, Other)
  Sender: FDA-Public Use
  Company Number: US-GENZYME-CERZ-1001786

PATIENT

DRUGS (3)
  1. RANITIDINE [Concomitant]
     Indication: GASTROOESOPHAGEAL REFLUX DISEASE
  2. NYSTATINE [Concomitant]
     Indication: ORAL CANDIDIASIS
  3. CEREZYME [Suspect]
     Indication: GAUCHER'S DISEASE
     Dosage: 70 U/KG, Q2W
     Route: 042
     Dates: start: 20100101, end: 20101201

REACTIONS (5)
  - APNOEA [None]
  - OXYGEN SATURATION DECREASED [None]
  - RESPIRATORY SYNCYTIAL VIRUS INFECTION [None]
  - DISEASE PROGRESSION [None]
  - TONIC CLONIC MOVEMENTS [None]
